FAERS Safety Report 20480353 (Version 1)
Quarter: 2022Q1

REPORT INFORMATION
  Report Type: Spontaneous
  Country: US (occurrence: US)
  Receive Date: 20220216
  Receipt Date: 20220216
  Transmission Date: 20220424
  Serious: No
  Sender: FDA-Public Use
  Company Number: US-PFIZER INC-202101631232

PATIENT
  Age: 62 Year
  Sex: Male

DRUGS (5)
  1. XELJANZ [Suspect]
     Active Substance: TOFACITINIB CITRATE
     Indication: Colitis ulcerative
     Dosage: 10 MG, 2X/DAY(TABS 60^S)
     Route: 048
     Dates: start: 20210923
  2. MODERNA COVID-19 VACCINE [Concomitant]
     Active Substance: ELASOMERAN
     Indication: COVID-19 immunisation
     Dosage: UNK
  3. ENTYVIO [Concomitant]
     Active Substance: VEDOLIZUMAB
     Dosage: 300 MG (VIAL)
  4. INDIAN FRANKINCENSE [Concomitant]
     Active Substance: INDIAN FRANKINCENSE
     Dosage: UNK
  5. HERBALS\TURMERIC [Concomitant]
     Active Substance: HERBALS\TURMERIC
     Dosage: 1053 MG

REACTIONS (1)
  - Illness [Not Recovered/Not Resolved]
